FAERS Safety Report 5613114-5 (Version None)
Quarter: 2008Q1

REPORT INFORMATION
  Report Type: 
  Country: None (occurrence: None)
  Receive Date: 20080204
  Receipt Date: 20080123
  Transmission Date: 20080703
  Serious: Yes (Other)
  Sender: FDA-Public Use
  Company Number: US-PFIZER INC-2008009352

PATIENT
  Sex: Female
  Weight: 65.3 kg

DRUGS (9)
  1. CHANTIX [Suspect]
     Indication: SMOKING CESSATION THERAPY
     Route: 048
     Dates: start: 20071101, end: 20071201
  2. MEPROZINE [Concomitant]
  3. ETODOLAC [Concomitant]
  4. NEXIUM [Concomitant]
  5. NEURONTIN [Concomitant]
  6. NADOLOL [Concomitant]
  7. ISOSORBIDE DINITRATE [Concomitant]
  8. TIGAN [Concomitant]
  9. VALSARTAN [Concomitant]

REACTIONS (2)
  - HYPERTENSION [None]
  - SELF-INJURIOUS IDEATION [None]
